FAERS Safety Report 16703553 (Version 2)
Quarter: 2019Q3

REPORT INFORMATION
  Report Type: Spontaneous
  Country: FR (occurrence: FR)
  Receive Date: 20190814
  Receipt Date: 20190814
  Transmission Date: 20191004
  Serious: Yes (Hospitalization)
  Sender: FDA-Public Use
  Company Number: PHHY2019FR185715

PATIENT
  Age: 57 Year
  Sex: Male
  Weight: 60 kg

DRUGS (4)
  1. CICLOSPORIN [Suspect]
     Active Substance: CYCLOSPORINE
     Indication: PSORIASIS
     Dosage: UNK
     Route: 065
  2. RAPTIVA [Suspect]
     Active Substance: EFALIZUMAB
     Indication: PSORIASIS
     Dosage: 0.65 ML, QW
     Route: 058
     Dates: start: 200810, end: 200902
  3. METHOTREXATE. [Suspect]
     Active Substance: METHOTREXATE
     Indication: PSORIASIS
     Dosage: 10 MG, QW
     Route: 048
     Dates: start: 200604, end: 200902
  4. SORIATANE [Suspect]
     Active Substance: ACITRETIN
     Indication: PSORIASIS
     Dosage: UNK
     Route: 048

REACTIONS (1)
  - Plasmacytoma [Recovered/Resolved]

NARRATIVE: CASE EVENT DATE: 200902
